FAERS Safety Report 18140687 (Version 1)
Quarter: 2020Q3

REPORT INFORMATION
  Report Type: Spontaneous
  Country: US (occurrence: US)
  Receive Date: 20200812
  Receipt Date: 20200812
  Transmission Date: 20201103
  Serious: No
  Sender: FDA-Public Use
  Company Number: US-009507513-2008USA005914

PATIENT
  Age: 22 Year
  Sex: Female
  Weight: 59.86 kg

DRUGS (1)
  1. ETONOGESTREL IMPLANT [Suspect]
     Active Substance: ETONOGESTREL
     Dosage: UNK
     Route: 059
     Dates: end: 20200807

REACTIONS (1)
  - Complication of device removal [Recovered/Resolved]

NARRATIVE: CASE EVENT DATE: 20200807
